FAERS Safety Report 4535565-2 (Version None)
Quarter: 2004Q4

REPORT INFORMATION
  Report Type: 
  Country: None (occurrence: None)
  Receive Date: 20041214
  Receipt Date: 20041008
  Transmission Date: 20050328
  Serious: Yes (Other)
  Sender: FDA-Public Use
  Company Number: 2004238171US

PATIENT
  Age: 44 Year
  Sex: Female
  Weight: 93 kg

DRUGS (5)
  1. BEXTRA [Suspect]
     Indication: ARTHRALGIA
     Dosage: 20 MG, QD, ORAL
     Route: 048
     Dates: start: 20010101
  2. SYNTHROID [Concomitant]
  3. COSOPT [Concomitant]
  4. PILOCARPINE (PILOCARPINE) [Concomitant]
  5. XALATAN [Concomitant]

REACTIONS (2)
  - CATARACT [None]
  - VISUAL ACUITY REDUCED [None]
